FAERS Safety Report 16828288 (Version 1)
Quarter: 2019Q3

REPORT INFORMATION
  Report Type: Report from Study
  Country: None (occurrence: CL)
  Receive Date: 20190919
  Receipt Date: 20190919
  Transmission Date: 20191005
  Serious: Yes (Other)
  Sender: FDA-Public Use
  Company Number: CL-ABBVIE-19K-034-2931275-00

PATIENT
  Sex: Male

DRUGS (1)
  1. HUMIRA [Suspect]
     Active Substance: ADALIMUMAB
     Indication: RHEUMATOID ARTHRITIS
     Route: 058
     Dates: start: 20190104, end: 201908

REACTIONS (2)
  - Gallbladder disorder [Recovered/Resolved]
  - Laboratory test abnormal [Unknown]

NARRATIVE: CASE EVENT DATE: 2019
